FAERS Safety Report 11442223 (Version 9)
Quarter: 2016Q3

REPORT INFORMATION
  Report Type: Spontaneous
  Country: US (occurrence: US)
  Receive Date: 20150901
  Receipt Date: 20160706
  Transmission Date: 20161109
  Serious: Yes (Hospitalization, Other)
  Sender: FDA-Public Use
  Company Number: US-PFIZER INC-2015286666

PATIENT
  Age: 49 Year
  Sex: Female
  Weight: 59 kg

DRUGS (4)
  1. DIFLUCAN [Suspect]
     Active Substance: FLUCONAZOLE
     Indication: COCCIDIOIDOMYCOSIS
     Dosage: UNK
     Route: 042
  2. DIFLUCAN [Suspect]
     Active Substance: FLUCONAZOLE
     Dosage: 200 MG, 2X/DAY
     Route: 042
  3. LEVAQUIN [Concomitant]
     Active Substance: LEVOFLOXACIN
     Dosage: UNK
  4. FLUCONAZOLE. [Suspect]
     Active Substance: FLUCONAZOLE
     Indication: COCCIDIOIDOMYCOSIS
     Dosage: UNK
     Route: 042
     Dates: start: 2011, end: 2011

REACTIONS (8)
  - Rash [Unknown]
  - Product use issue [Unknown]
  - Urticaria [Unknown]
  - Rash papular [Unknown]
  - Hypersensitivity [Recovered/Resolved]
  - Rash generalised [Unknown]
  - Malaise [Unknown]
  - Throat tightness [Unknown]

NARRATIVE: CASE EVENT DATE: 2011
